FAERS Safety Report 20353091 (Version 1)
Quarter: 2022Q1

REPORT INFORMATION
  Report Type: Spontaneous
  Country: US (occurrence: None)
  Receive Date: 20220119
  Receipt Date: 20220119
  Transmission Date: 20220423
  Serious: Yes (Hospitalization, Other)
  Sender: FDA-Public Use
  Company Number: US-FRESENIUS KABI-FK202200608

PATIENT
  Age: 72 Year
  Sex: Male
  Weight: 109.8 kg

DRUGS (6)
  1. FLUDARABINE [Suspect]
     Active Substance: FLUDARABINE PHOSPHATE
     Indication: Chronic lymphocytic leukaemia
     Route: 042
     Dates: start: 20211210, end: 20211212
  2. LISOCABTAGENE MARALEUCEL [Suspect]
     Active Substance: LISOCABTAGENE MARALEUCEL
     Indication: Chronic lymphocytic leukaemia
     Dosage: JCAR017?50X10^6 CAR+TCELLS
     Route: 042
     Dates: start: 20211215, end: 20211215
  3. CYCLOPHOSPHAMIDE [Suspect]
     Active Substance: CYCLOPHOSPHAMIDE
     Indication: Chronic lymphocytic leukaemia
     Route: 042
     Dates: start: 20211210, end: 20211212
  4. IBRUTINIB [Suspect]
     Active Substance: IBRUTINIB
     Indication: Chronic lymphocytic leukaemia
     Dosage: UNKNOWN
     Route: 048
     Dates: start: 20211023
  5. IBRUTINIB [Suspect]
     Active Substance: IBRUTINIB
     Dosage: UNKNOWN
     Route: 048
     Dates: start: 20211207
  6. IBRUTINIB [Suspect]
     Active Substance: IBRUTINIB
     Dosage: UNKNOWN
     Route: 048
     Dates: start: 20211221

REACTIONS (1)
  - Febrile neutropenia [Not Recovered/Not Resolved]

NARRATIVE: CASE EVENT DATE: 20211220
